FAERS Safety Report 13951035 (Version 2)
Quarter: 2017Q3

REPORT INFORMATION
  Report Type: Spontaneous
  Country: JP (occurrence: JP)
  Receive Date: 20170908
  Receipt Date: 20170915
  Transmission Date: 20171128
  Serious: Yes (Other)
  Sender: FDA-Public Use
  Company Number: JP-BEH-2017083460

PATIENT
  Age: 85 Year
  Sex: Female
  Weight: 41.9 kg

DRUGS (22)
  1. NICARDIPINE [Concomitant]
     Active Substance: NICARDIPINE
     Dosage: UNK
     Route: 065
     Dates: start: 20170804
  2. HICALIQ [Concomitant]
     Active Substance: CALCIUM GLUCONATE\DEXTROSE\MAGNESIUM SULFATE\POTASSIUM ACETATE\POTASSIUM PHOSPHATE, DIBASIC\ZINC SULFATE
     Dosage: UNK
     Route: 065
     Dates: start: 20170710, end: 20170801
  3. VITAJECT                           /00176001/ [Concomitant]
     Active Substance: CYANOCOBALAMIN\PYRIDOXINE HYDROCHLORIDE\THIAMINE
     Dosage: UNK
     Route: 065
     Dates: start: 20170710, end: 20170801
  4. SODIUM PHOSPHATE [Concomitant]
     Active Substance: SODIUM PHOSPHATE
     Dosage: UNK
     Route: 065
     Dates: start: 20170802, end: 20170804
  5. ELEJECT [Concomitant]
     Dosage: UNK
     Route: 065
     Dates: start: 20170804
  6. TAZOPIP [Concomitant]
     Active Substance: PIPERACETAZINE\TAZOBACTAM
     Dosage: UNK
     Route: 065
     Dates: start: 20170804
  7. ELEJECT [Concomitant]
     Dosage: UNK
     Route: 065
     Dates: start: 20170710, end: 20170801
  8. NEOAMIYU [Concomitant]
     Active Substance: AMINO ACIDS
     Dosage: UNK
     Route: 065
     Dates: start: 20170804
  9. KCL [Concomitant]
     Active Substance: POTASSIUM CHLORIDE
     Dosage: UNK
     Route: 065
     Dates: start: 20170729, end: 20170801
  10. HUMULIN R [Concomitant]
     Active Substance: INSULIN HUMAN
     Dosage: UNK
     Route: 065
     Dates: start: 20170711
  11. NICARDIPINE [Concomitant]
     Active Substance: NICARDIPINE
     Dosage: UNK
     Route: 065
     Dates: start: 20170727, end: 20170731
  12. NEOAMIYU [Concomitant]
     Active Substance: AMINO ACIDS
     Dosage: UNK
     Route: 065
     Dates: start: 20170710, end: 20170801
  13. VITAJECT                           /00176001/ [Concomitant]
     Active Substance: CYANOCOBALAMIN\PYRIDOXINE HYDROCHLORIDE\THIAMINE
     Dosage: UNK
     Route: 065
     Dates: start: 20170804
  14. OMEPRAZOLE. [Concomitant]
     Active Substance: OMEPRAZOLE
     Dosage: UNK
     Route: 065
     Dates: start: 20170726, end: 20170801
  15. OMEPRAZOLE. [Concomitant]
     Active Substance: OMEPRAZOLE
     Dosage: UNK
     Route: 065
     Dates: start: 20170804
  16. ALBUMINAR-25 [Suspect]
     Active Substance: ALBUMIN HUMAN
     Indication: HAEMODIALYSIS
     Dosage: 50 ML, QD
     Route: 042
     Dates: start: 20170724, end: 20170809
  17. KCL [Concomitant]
     Active Substance: POTASSIUM CHLORIDE
     Dosage: UNK
     Route: 065
     Dates: start: 20170710, end: 20170726
  18. SODIUM PHOSPHATE [Concomitant]
     Active Substance: SODIUM PHOSPHATE
     Dosage: UNK
     Route: 065
     Dates: start: 20170809
  19. NAFAMOSTAT [Suspect]
     Active Substance: NAFAMOSTAT
     Indication: HAEMODIALYSIS
     Dosage: 200 MG, QD
     Route: 065
     Dates: start: 20170710
  20. HEPARIN [Suspect]
     Active Substance: HEPARIN SODIUM
     Indication: HAEMODIALYSIS
     Dosage: 2 BOTTLES, QD
     Route: 065
     Dates: start: 20170710
  21. HICALIQ [Concomitant]
     Active Substance: CALCIUM GLUCONATE\DEXTROSE\MAGNESIUM SULFATE\POTASSIUM ACETATE\POTASSIUM PHOSPHATE, DIBASIC\ZINC SULFATE
     Dosage: UNK
     Route: 065
     Dates: start: 20170804
  22. KCL [Concomitant]
     Active Substance: POTASSIUM CHLORIDE
     Dosage: UNK
     Route: 065
     Dates: start: 20170804

REACTIONS (2)
  - Oxygen saturation decreased [Recovered/Resolved]
  - Wheezing [Recovered/Resolved]

NARRATIVE: CASE EVENT DATE: 20170809
